FAERS Safety Report 5658936-X (Version None)
Quarter: 2008Q1

REPORT INFORMATION
  Report Type: 
  Country: None (occurrence: None)
  Receive Date: 20080310
  Receipt Date: 20070507
  Transmission Date: 20080703
  Serious: No
  Sender: FDA-Public Use
  Company Number: US-BAYER-200711439BCC

PATIENT
  Age: 48 Year
  Sex: Male
  Weight: 77 kg

DRUGS (1)
  1. ALEVE [Suspect]
     Indication: NERVE COMPRESSION
     Dosage: AS USED: 440/220/220 MG  UNIT DOSE: 220 MG
     Route: 048
     Dates: start: 20070507

REACTIONS (1)
  - NO ADVERSE EVENT [None]
